FAERS Safety Report 25358312 (Version 1)
Quarter: 2025Q2

REPORT INFORMATION
  Report Type: Spontaneous
  Country: CN (occurrence: CN)
  Receive Date: 20250526
  Receipt Date: 20250526
  Transmission Date: 20250717
  Serious: Yes (Other)
  Sender: SANOFI AVENTIS
  Company Number: CN-DialogSolutions-SAAVPROD-PI771103-C2

PATIENT
  Age: 40 Year
  Sex: Female

DRUGS (4)
  1. DUPILUMAB [Suspect]
     Active Substance: DUPILUMAB
     Indication: Dermatitis atopic
     Dates: start: 2023, end: 2023
  2. DUPILUMAB [Suspect]
     Active Substance: DUPILUMAB
     Indication: Dermatitis exfoliative generalised
  3. UPADACITINIB [Suspect]
     Active Substance: UPADACITINIB
     Indication: Dermatitis atopic
     Dates: start: 2023
  4. UPADACITINIB [Suspect]
     Active Substance: UPADACITINIB
     Indication: Dermatitis exfoliative generalised

REACTIONS (8)
  - Cutaneous T-cell lymphoma stage IV [Recovering/Resolving]
  - Erythema [Recovering/Resolving]
  - Pustule [Recovering/Resolving]
  - Hyperkeratosis [Recovering/Resolving]
  - Ulcer [Recovering/Resolving]
  - Skin exfoliation [Recovering/Resolving]
  - Nail disorder [Recovering/Resolving]
  - Dermatitis psoriasiform [Recovering/Resolving]

NARRATIVE: CASE EVENT DATE: 20230101
